FAERS Safety Report 15562524 (Version 1)
Quarter: 2018Q4

REPORT INFORMATION
  Report Type: Spontaneous
  Country: US (occurrence: US)
  Receive Date: 20181029
  Receipt Date: 20181029
  Transmission Date: 20190205
  Serious: Yes (Other)
  Sender: FDA-Public Use
  Company Number: US-AMGEN-USASP2018147972

PATIENT
  Sex: Male

DRUGS (3)
  1. ENBREL [Suspect]
     Active Substance: ETANERCEPT
     Dosage: 25 MG, 2 TIMES/WK
     Route: 065
  2. ENBREL [Suspect]
     Active Substance: ETANERCEPT
     Indication: RHEUMATOID ARTHRITIS
     Dosage: UNK
     Route: 065
     Dates: start: 2004
  3. ENBREL [Suspect]
     Active Substance: ETANERCEPT
     Dosage: 25 MG, 2 TIMES/WK
     Route: 065
     Dates: start: 20181017

REACTIONS (8)
  - Ankle fracture [Unknown]
  - Accident [Unknown]
  - Tooth disorder [Unknown]
  - Musculoskeletal disorder [Unknown]
  - Osteomyelitis [Unknown]
  - Upper respiratory tract infection [Unknown]
  - Inflammation [Unknown]
  - Malaise [Unknown]

NARRATIVE: CASE EVENT DATE: 2017
